FAERS Safety Report 12931221 (Version 1)
Quarter: 2016Q4

REPORT INFORMATION
  Report Type: Spontaneous
  Country: US (occurrence: US)
  Receive Date: 20161110
  Receipt Date: 20161110
  Transmission Date: 20170207
  Serious: No
  Sender: FDA-Public Use
  Company Number: US-JAZZ-2016-US-018016

PATIENT
  Sex: Female

DRUGS (43)
  1. XYREM [Suspect]
     Active Substance: SODIUM OXYBATE
     Indication: NARCOLEPSY
     Dosage: 1.5 G, BID
     Route: 048
     Dates: start: 201001, end: 201003
  2. XYREM [Suspect]
     Active Substance: SODIUM OXYBATE
     Dosage: DOSE ADJUSTMENTS
     Route: 048
     Dates: start: 201003, end: 201212
  3. ZONISAMIDE. [Concomitant]
     Active Substance: ZONISAMIDE
  4. VERAPAMIL [Concomitant]
     Active Substance: VERAPAMIL HYDROCHLORIDE
  5. RITALIN [Concomitant]
     Active Substance: METHYLPHENIDATE HYDROCHLORIDE
  6. COLACE [Concomitant]
     Active Substance: DOCUSATE SODIUM
  7. TORADOL [Concomitant]
     Active Substance: KETOROLAC TROMETHAMINE
  8. XYREM [Suspect]
     Active Substance: SODIUM OXYBATE
     Dosage: 3 G, SECOND DOSE
     Route: 048
     Dates: start: 201212
  9. VIMOVO [Concomitant]
     Active Substance: ESOMEPRAZOLE MAGNESIUM\NAPROXEN
  10. SAVELLA [Concomitant]
     Active Substance: MILNACIPRAN HYDROCHLORIDE
  11. LIALDA DR [Concomitant]
  12. MAXALT-MLT [Concomitant]
     Active Substance: RIZATRIPTAN BENZOATE
  13. PREVACID [Concomitant]
     Active Substance: LANSOPRAZOLE
  14. LACTULOSE. [Concomitant]
     Active Substance: LACTULOSE
  15. TRAMADOL HCL [Concomitant]
     Active Substance: TRAMADOL HYDROCHLORIDE
  16. TREXIMET [Concomitant]
     Active Substance: NAPROXEN SODIUM\SUMATRIPTAN SUCCINATE
  17. PROTRIPTYLINE HCL [Concomitant]
  18. ULTRAM [Concomitant]
     Active Substance: TRAMADOL HYDROCHLORIDE
  19. EVOXAC [Concomitant]
     Active Substance: CEVIMELINE HYDROCHLORIDE
  20. LYRICA [Concomitant]
     Active Substance: PREGABALIN
  21. NORTRIPTYLINE [Concomitant]
     Active Substance: NORTRIPTYLINE
  22. MULTIVITAMINS [Concomitant]
     Active Substance: VITAMINS
  23. ALSUMA [Concomitant]
     Active Substance: SUMATRIPTAN SUCCINATE
  24. FLOMAX [Concomitant]
     Active Substance: TAMSULOSIN HYDROCHLORIDE
  25. AMITIZA [Concomitant]
     Active Substance: LUBIPROSTONE
  26. VITAMIN D3 [Concomitant]
     Active Substance: CHOLECALCIFEROL
  27. NAPROXEN SODIUM. [Concomitant]
     Active Substance: NAPROXEN SODIUM
  28. NORTRIPTYLINE HCL [Concomitant]
     Active Substance: NORTRIPTYLINE HYDROCHLORIDE
  29. DYMISTA [Concomitant]
     Active Substance: AZELASTINE HYDROCHLORIDE\FLUTICASONE PROPIONATE
  30. METHOCARBAMOL. [Concomitant]
     Active Substance: METHOCARBAMOL
  31. BOTOX [Concomitant]
     Active Substance: ONABOTULINUMTOXINA
  32. OXYCODONE HCL ER [Concomitant]
     Active Substance: OXYCODONE HYDROCHLORIDE
  33. AUBAGIO [Concomitant]
     Active Substance: TERIFLUNOMIDE
  34. CYMBALTA [Concomitant]
     Active Substance: DULOXETINE HYDROCHLORIDE
  35. XYREM [Suspect]
     Active Substance: SODIUM OXYBATE
     Dosage: 4.5 G, FIRST DOSE
     Route: 048
     Dates: start: 201212
  36. MIRALAX [Concomitant]
     Active Substance: POLYETHYLENE GLYCOL 3350
  37. FISH OIL CONCENTRATE [Concomitant]
     Active Substance: FISH OIL
  38. PROVIGIL [Concomitant]
     Active Substance: MODAFINIL
  39. CALCIUM + VITAMIN D [Concomitant]
     Active Substance: CALCIUM\VITAMIN D
  40. RESTASIS [Concomitant]
     Active Substance: CYCLOSPORINE
  41. SENNA S [Concomitant]
     Active Substance: DOCUSATE SODIUM\SENNA LEAF
  42. GRALISE ER [Concomitant]
  43. POTASSIUM CITRATE ER [Concomitant]

REACTIONS (2)
  - Fibromyalgia [Unknown]
  - Migraine [Not Recovered/Not Resolved]
